FAERS Safety Report 8909966 (Version 2)
Quarter: 2013Q2

REPORT INFORMATION
  Report Type: Spontaneous
  Country: US (occurrence: US)
  Receive Date: 20121114
  Receipt Date: 20130403
  Transmission Date: 20140414
  Serious: Yes (Other)
  Sender: FDA-Public Use
  Company Number: US-FRI-1000040301

PATIENT
  Age: 46 Year
  Sex: Female
  Weight: 63.5 kg

DRUGS (6)
  1. VIIBRYD [Suspect]
     Indication: MAJOR DEPRESSION
     Dosage: 10 MG
     Route: 048
     Dates: start: 20120829, end: 20120904
  2. VIIBRYD [Suspect]
     Dosage: 20 MG
     Route: 048
     Dates: start: 20120905, end: 20120911
  3. VIIBRYD [Suspect]
     Indication: MAJOR DEPRESSION
     Dosage: 40 MG
     Route: 048
     Dates: start: 20120912, end: 20121108
  4. ALPRAZOLAM [Concomitant]
     Dosage: 0.5 MG
  5. OMEPRAZOLE [Concomitant]
  6. CYCLOBENZAPRINE [Concomitant]

REACTIONS (1)
  - Suicidal ideation [Recovered/Resolved]
